FAERS Safety Report 20353484 (Version 1)
Quarter: 2022Q1

REPORT INFORMATION
  Report Type: Spontaneous
  Country: US (occurrence: US)
  Receive Date: 20220119
  Receipt Date: 20220119
  Transmission Date: 20220423
  Serious: Yes (Hospitalization, Other)
  Sender: FDA-Public Use
  Company Number: US-BIOVITRUM-2022US00550

PATIENT
  Sex: Female

DRUGS (1)
  1. SYNAGIS [Suspect]
     Active Substance: PALIVIZUMAB
     Indication: Anomalous pulmonary venous connection
     Dosage: 60.3000
     Route: 030
     Dates: start: 20211020

REACTIONS (2)
  - COVID-19 [Unknown]
  - Respiratory distress [Unknown]
